FAERS Safety Report 24375976 (Version 1)
Quarter: 2024Q3

REPORT INFORMATION
  Report Type: Spontaneous
  Country: US (occurrence: US)
  Receive Date: 20240928
  Receipt Date: 20240928
  Transmission Date: 20241016
  Serious: No
  Sender: MERCK
  Company Number: US-009507513-2409USA000835

PATIENT
  Sex: Male
  Weight: 68.027 kg

DRUGS (11)
  1. WINREVAIR [Suspect]
     Active Substance: SOTATERCEPT-CSRK
  2. REMODULIN [Suspect]
     Active Substance: TREPROSTINIL
     Indication: Pulmonary arterial hypertension
     Dosage: 0.053 UG/KG (SELF-FILL CASSETTE WITH 1.7 ML, RATE OF 16 MCL/HOUR), CONTINUOUS
     Route: 058
     Dates: start: 20231130
  3. REMODULIN [Suspect]
     Active Substance: TREPROSTINIL
     Dosage: UNK; FREQUENCY: CONTINUOUS
     Route: 058
     Dates: start: 20231130
  4. PREDNISONE [Concomitant]
     Active Substance: PREDNISONE
     Dosage: UNK
  5. SODIUM CHLORIDE [Concomitant]
     Active Substance: SODIUM CHLORIDE
     Dosage: UNK
  6. OPSUMIT [Concomitant]
     Active Substance: MACITENTAN
     Dosage: UNK
  7. VELETRI [Concomitant]
     Active Substance: EPOPROSTENOL
     Dosage: UNK
  8. CALCIUM [Concomitant]
     Active Substance: CALCIUM
     Dosage: UNK
  9. GABAPENTIN [Concomitant]
     Active Substance: GABAPENTIN
  10. ADEMPAS [Concomitant]
     Active Substance: RIOCIGUAT
     Dosage: UNK
  11. MYCOPHENOLATE MOFETIL [Concomitant]
     Active Substance: MYCOPHENOLATE MOFETIL
     Dosage: UNK

REACTIONS (1)
  - Burning sensation [Unknown]
